FAERS Safety Report 12859950 (Version 2)
Quarter: 2017Q2

REPORT INFORMATION
  Report Type: Spontaneous
  Country: JP (occurrence: JP)
  Receive Date: 20161019
  Receipt Date: 20170609
  Transmission Date: 20170830
  Serious: Yes (Hospitalization, Other)
  Sender: FDA-Public Use
  Company Number: JP-GLAXOSMITHKLINE-JP2016JPN134142

PATIENT
  Age: 68 Year
  Sex: Female

DRUGS (3)
  1. SULTANOL [Suspect]
     Active Substance: ALBUTEROL SULFATE
     Indication: ASTHMA
     Dosage: 100 ?G, PRN
     Route: 055
     Dates: start: 20041218
  2. SERETIDE [Suspect]
     Active Substance: FLUTICASONE PROPIONATE\SALMETEROL XINAFOATE
     Indication: ASTHMA
     Dosage: 250 ?G, BID
     Route: 055
     Dates: start: 20041218
  3. INSULINE [Concomitant]
     Active Substance: INSULIN NOS
     Indication: DIABETES MELLITUS
     Dosage: UNK
     Dates: start: 20061011, end: 201510

REACTIONS (24)
  - Back pain [Unknown]
  - Hypoaesthesia [Unknown]
  - Hypertension [Recovering/Resolving]
  - Head discomfort [Unknown]
  - Pain in extremity [Unknown]
  - Osteoarthritis [Unknown]
  - Bronchitis [Recovering/Resolving]
  - Oedema peripheral [Recovering/Resolving]
  - Diabetic neuropathy [Unknown]
  - Spinal compression fracture [Unknown]
  - Rib fracture [Recovering/Resolving]
  - Abdominal pain upper [Unknown]
  - Glaucoma [Unknown]
  - Sciatica [Unknown]
  - Restless legs syndrome [Unknown]
  - Insomnia [Unknown]
  - Wrist fracture [Unknown]
  - Asthma [Recovering/Resolving]
  - Diabetes mellitus inadequate control [Recovering/Resolving]
  - Spondylolisthesis [Unknown]
  - Nausea [Unknown]
  - Headache [Unknown]
  - Fall [Unknown]
  - Gastric ulcer [Unknown]

NARRATIVE: CASE EVENT DATE: 20050307
